FAERS Safety Report 6377067-7 (Version None)
Quarter: 2009Q3

REPORT INFORMATION
  Report Type: 
  Country: None (occurrence: None)
  Receive Date: 20090925
  Receipt Date: 20090911
  Transmission Date: 20100115
  Serious: Yes (Other)
  Sender: FDA-Public Use
  Company Number: CA-MYLANLABS-2009S1016105

PATIENT
  Age: 61 Year
  Sex: Female

DRUGS (1)
  1. GEN-NIFEDIPINE [Suspect]
     Indication: BLOOD PRESSURE INCREASED
     Dates: start: 20090601, end: 20090820

REACTIONS (2)
  - DIZZINESS [None]
  - HEART RATE IRREGULAR [None]
